FAERS Safety Report 8093827-9 (Version None)
Quarter: 2012Q1

REPORT INFORMATION
  Report Type: 
  Country: None (occurrence: None)
  Receive Date: 20120129
  Receipt Date: 20110913
  Transmission Date: 20120608
  Serious: No
  Sender: FDA-Public Use
  Company Number: US-ABBOTT-11P-163-0854238-00

PATIENT
  Age: 43 Year
  Sex: Female

DRUGS (5)
  1. HUMIRA [Suspect]
     Indication: RHEUMATOID ARTHRITIS
     Dosage: QOW
  2. FOLIC ACID [Concomitant]
     Indication: PRODUCT USED FOR UNKNOWN INDICATION
  3. ENTERIC COATED NAPROXEN [Concomitant]
     Indication: PAIN
  4. FLONASE [Concomitant]
     Indication: HYPERSENSITIVITY
  5. METHOTREXATE [Concomitant]
     Indication: PRODUCT USED FOR UNKNOWN INDICATION
     Dosage: 2.5 MG 4 TABS WEEKLY

REACTIONS (2)
  - INJECTION SITE HAEMORRHAGE [None]
  - DEVICE MALFUNCTION [None]
